FAERS Safety Report 13062925 (Version 1)
Quarter: 2016Q4

REPORT INFORMATION
  Report Type: Spontaneous
  Country: CA (occurrence: CA)
  Receive Date: 20161227
  Receipt Date: 20161227
  Transmission Date: 20170207
  Serious: Yes (Other)
  Sender: FDA-Public Use
  Company Number: CA-TEVA-722739ACC

PATIENT
  Age: 70 Year
  Sex: Male
  Weight: 66.74 kg

DRUGS (1)
  1. NOVAMOXIN [Suspect]
     Active Substance: AMOXICILLIN
     Indication: SINUSITIS
     Dosage: 1500 MILLIGRAM DAILY;
     Route: 048

REACTIONS (4)
  - Disorientation [Recovered/Resolved]
  - Nausea [Recovered/Resolved]
  - Muscle spasms [Recovered/Resolved]
  - Abdominal discomfort [Recovered/Resolved]
